FAERS Safety Report 5645586-4 (Version None)
Quarter: 2008Q1

REPORT INFORMATION
  Report Type: 
  Country: None (occurrence: None)
  Receive Date: 20080229
  Receipt Date: 20060501
  Transmission Date: 20080703
  Serious: Yes (Other)
  Sender: FDA-Public Use
  Company Number: US-RANBAXY-2006US-02099

PATIENT

DRUGS (2)
  1. ISOTRETINOIN [Suspect]
     Indication: DRUG USE FOR UNKNOWN INDICATION
     Dosage: 40 MG, QD
     Route: 048
     Dates: start: 20051207, end: 20060421
  2. ISOTRETINOIN [Suspect]
     Dosage: 40 MG, QD
     Route: 048
     Dates: start: 20060414, end: 20060421

REACTIONS (3)
  - C-REACTIVE PROTEIN INCREASED [None]
  - JOINT SWELLING [None]
  - RED BLOOD CELL SEDIMENTATION RATE INCREASED [None]
